FAERS Safety Report 5075920-8 (Version None)
Quarter: 2006Q3

REPORT INFORMATION
  Report Type: 
  Country: None (occurrence: None)
  Receive Date: 20060808
  Receipt Date: 20060808
  Transmission Date: 20061208
  Serious: Yes (Other)
  Sender: FDA-Public Use
  Company Number: None

PATIENT
  Age: 12 Year
  Sex: Female
  Weight: 207 kg

DRUGS (4)
  1. FLUOXETINE [Suspect]
     Indication: ANXIETY
     Dosage: 10 MG, TWICE, ORAL
     Route: 048
     Dates: start: 20060724
  2. FLUOXETINE [Suspect]
     Indication: DEPRESSION
     Dosage: 10 MG, TWICE, ORAL
     Route: 048
     Dates: start: 20060724
  3. FLUOXETINE [Suspect]
     Indication: ANXIETY
     Dosage: 10 MG, TWICE, ORAL
     Route: 048
     Dates: start: 20060725
  4. FLUOXETINE [Suspect]
     Indication: DEPRESSION
     Dosage: 10 MG, TWICE, ORAL
     Route: 048
     Dates: start: 20060725

REACTIONS (9)
  - ANOREXIA [None]
  - DYSKINESIA [None]
  - HEADACHE [None]
  - HYPERHIDROSIS [None]
  - ILL-DEFINED DISORDER [None]
  - INSOMNIA [None]
  - MANIA [None]
  - NIGHTMARE [None]
  - SYNCOPE [None]
